FAERS Safety Report 6771352-2 (Version None)
Quarter: 2010Q2

REPORT INFORMATION
  Report Type: 
  Country: None (occurrence: None)
  Receive Date: 20100616
  Receipt Date: 20100614
  Transmission Date: 20101027
  Serious: Yes (Hospitalization)
  Sender: FDA-Public Use
  Company Number: CH-BRISTOL-MYERS SQUIBB COMPANY-15146517

PATIENT
  Age: 81 Year
  Sex: Male

DRUGS (7)
  1. ORENCIA [Suspect]
     Indication: RHEUMATOID ARTHRITIS
     Route: 042
     Dates: start: 20100210, end: 20100210
  2. AMLODIPINE [Concomitant]
  3. ENALAPRIL MALEATE [Concomitant]
  4. MARCUMAR [Concomitant]
  5. PREDNISONE [Concomitant]
  6. DAFALGAN [Concomitant]
  7. BONIVA [Concomitant]

REACTIONS (3)
  - DECREASED APPETITE [None]
  - NAUSEA [None]
  - WEIGHT DECREASED [None]
